FAERS Safety Report 12810515 (Version 1)
Quarter: 2016Q4

REPORT INFORMATION
  Report Type: Spontaneous
  Country: KR (occurrence: KR)
  Receive Date: 20161005
  Receipt Date: 20161005
  Transmission Date: 20170207
  Serious: Yes (Other)
  Sender: FDA-Public Use
  Company Number: PHHY2016KR136119

PATIENT
  Age: 51 Year
  Sex: Female

DRUGS (4)
  1. VALTREX [Interacting]
     Active Substance: VALACYCLOVIR HYDROCHLORIDE
     Dosage: UNK
     Route: 048
  2. VALTREX [Interacting]
     Active Substance: VALACYCLOVIR HYDROCHLORIDE
     Indication: HERPES SIMPLEX
     Dosage: UNK
     Route: 065
  3. FAMVIR [Suspect]
     Active Substance: FAMCICLOVIR
     Indication: HERPES SIMPLEX
     Dosage: UNK
     Route: 065
  4. ZOVIRAX [Interacting]
     Active Substance: ACYCLOVIR
     Indication: HERPES SIMPLEX
     Dosage: UNK
     Route: 065

REACTIONS (4)
  - Drug cross-reactivity [Unknown]
  - Fixed drug eruption [Unknown]
  - Macule [Unknown]
  - Erythema [Unknown]
